FAERS Safety Report 23244098 (Version 1)
Quarter: 2023Q4

REPORT INFORMATION
  Report Type: Spontaneous
  Country: US (occurrence: US)
  Receive Date: 20231130
  Receipt Date: 20231130
  Transmission Date: 20240109
  Serious: No
  Sender: FDA-Public Use
  Company Number: US-IBSA PHARMA INC.-2023IBS000205

PATIENT

DRUGS (2)
  1. TIROSINT [Suspect]
     Active Substance: LEVOTHYROXINE SODIUM
     Indication: Thyroid hormone replacement therapy
     Dosage: 175 MICROGRAM
  2. TIROSINT [Suspect]
     Active Substance: LEVOTHYROXINE SODIUM
     Dosage: 150 MICROGRAM

REACTIONS (5)
  - Malaise [Unknown]
  - Muscular weakness [Unknown]
  - Fatigue [Unknown]
  - Blood thyroid stimulating hormone abnormal [Unknown]
  - Intentional dose omission [Unknown]
